FAERS Safety Report 21819488 (Version 2)
Quarter: 2024Q2

REPORT INFORMATION
  Report Type: Spontaneous
  Country: US (occurrence: US)
  Receive Date: 20230104
  Receipt Date: 20240404
  Transmission Date: 20240716
  Serious: No
  Sender: FDA-Public Use
  Company Number: US-SA-SAC20230104000019

PATIENT
  Sex: Male
  Weight: 81.19 kg

DRUGS (14)
  1. DUPIXENT [Suspect]
     Active Substance: DUPILUMAB
     Indication: Asthma
     Dosage: 300 MG, QOW
     Route: 058
     Dates: start: 20221109
  2. ITRACONAZOLE [Concomitant]
     Active Substance: ITRACONAZOLE
     Dosage: UNK
  3. PANTOPRAZOLE SODIUM [Concomitant]
     Active Substance: PANTOPRAZOLE SODIUM
  4. CALCIUM [Concomitant]
     Active Substance: CALCIUM
  5. VITAMIN C [Concomitant]
     Active Substance: ASCORBIC ACID
  6. FISH OIL [Concomitant]
     Active Substance: FISH OIL
  7. MONTELUKAST SODIUM [Concomitant]
     Active Substance: MONTELUKAST SODIUM
  8. ASPIRIN [Concomitant]
     Active Substance: ASPIRIN
  9. LISINOPRIL [Concomitant]
     Active Substance: LISINOPRIL
  10. BREO ELLIPTA [Concomitant]
     Active Substance: FLUTICASONE FUROATE\VILANTEROL TRIFENATATE
  11. MAGNESIUM [Concomitant]
     Active Substance: MAGNESIUM
  12. SODIUM CHLORIDE [Concomitant]
     Active Substance: SODIUM CHLORIDE
  13. CREATINE [Concomitant]
     Active Substance: CREATINE
  14. PROBIOTICS NOS [Concomitant]
     Active Substance: PROBIOTICS NOS

REACTIONS (4)
  - Bronchopulmonary aspergillosis allergic [Unknown]
  - Injection site pain [Unknown]
  - Injection site erythema [Unknown]
  - Injection site bruising [Unknown]
